FAERS Safety Report 6740600-7 (Version None)
Quarter: 2010Q2

REPORT INFORMATION
  Report Type: 
  Country: None (occurrence: None)
  Receive Date: 20100521
  Receipt Date: 20100511
  Transmission Date: 20101027
  Serious: Yes (Death, Other)
  Sender: FDA-Public Use
  Company Number: 2009AL004499

PATIENT
  Age: 33 Year
  Sex: Female

DRUGS (5)
  1. VENLAFAXINE HYDROCHLORIDE TABLETS                          (ATLLC) [Suspect]
     Dosage: 225 MG;PO
     Route: 048
     Dates: start: 20040101
  2. CLOZARIL [Concomitant]
  3. ......................... [Concomitant]
  4. ...................... [Concomitant]
  5. ....................... [Concomitant]

REACTIONS (4)
  - CONVULSION [None]
  - DRUG INTERACTION [None]
  - DRUG TOXICITY [None]
  - FALL [None]
